FAERS Safety Report 8977857 (Version 2)
Quarter: 2013Q1

REPORT INFORMATION
  Report Type: Spontaneous
  Country: MX (occurrence: MX)
  Receive Date: 20121220
  Receipt Date: 20130201
  Transmission Date: 20140127
  Serious: Yes (Other)
  Sender: FDA-Public Use
  Company Number: PHHY2012MX117777

PATIENT
  Age: 75 Year
  Sex: Female

DRUGS (7)
  1. EXFORGE HCT [Suspect]
     Indication: HYPERTENSION
     Dosage: 2 DF(320/10/25 MG), DAILY
     Route: 048
     Dates: start: 201208, end: 201211
  2. METOPROLOL [Concomitant]
     Dosage: 1.5 DF, AT NIGHT AND MORNING
     Dates: start: 1987
  3. NORFENON [Concomitant]
     Indication: ARRHYTHMIA
     Dosage: 2 DF, DAILY
     Dates: start: 201208
  4. LEVOTHYROXINE [Concomitant]
     Indication: THYROID DISORDER
     Dosage: UNK UKN, UNK
     Dates: start: 2011
  5. PANTOZOL [Concomitant]
     Dosage: 2 DF, AT NIGHT AND AT MORNING
     Dates: start: 201207
  6. METFORMIN [Concomitant]
     Dosage: 2 DF, DAILY
     Dates: start: 2008
  7. PRADAXAR [Concomitant]
     Dosage: 110 MG, UNK
     Dates: end: 201211

REACTIONS (3)
  - Neoplasm skin [Recovered/Resolved]
  - Cerebrovascular accident [Recovered/Resolved]
  - Local swelling [Recovered/Resolved]
